FAERS Safety Report 6998093-0 (Version None)
Quarter: 2010Q3

REPORT INFORMATION
  Report Type: 
  Country: None (occurrence: None)
  Receive Date: 20100920
  Receipt Date: 20100217
  Transmission Date: 20110219
  Serious: Yes (Other)
  Sender: FDA-Public Use
  Company Number: US-ASTRAZENECA-2009UW20646

PATIENT
  Age: 15206 Day
  Sex: Female
  Weight: 127 kg

DRUGS (12)
  1. SEROQUEL [Suspect]
     Dosage: 50 MG AND 300 MG TABLET DISPENSED
     Route: 048
     Dates: start: 20061011
  2. HYDROCHLOROTHIAZIDE [Concomitant]
     Dates: start: 20051220
  3. POTASSIUM CL [Concomitant]
     Dates: start: 20051220
  4. OXYCODONE HCL AND ACETAMINOPHEN [Concomitant]
     Dosage: 10/650 MG
     Dates: start: 20051220
  5. HYOSCYAMINE [Concomitant]
     Dates: start: 20051222
  6. DIAZEPAM [Concomitant]
     Dates: start: 20060201
  7. REQUIP [Concomitant]
     Dates: start: 20061011
  8. LUNESTA [Concomitant]
     Dates: start: 20061011
  9. PROMETHAZINE [Concomitant]
     Dates: start: 20061013
  10. FUROSEMIDE [Concomitant]
     Dates: start: 20061017
  11. METHADONE [Concomitant]
     Dates: start: 20080706
  12. XANAX [Concomitant]
     Dates: start: 20080706

REACTIONS (3)
  - DIABETES MELLITUS [None]
  - KETOACIDOSIS [None]
  - PANCREATITIS [None]
